FAERS Safety Report 4269438-X (Version None)
Quarter: 2004Q1

REPORT INFORMATION
  Report Type: 
  Country: None (occurrence: None)
  Receive Date: 20040112
  Receipt Date: 20031230
  Transmission Date: 20041129
  Serious: Yes (Life-Threatening)
  Sender: FDA-Public Use
  Company Number: HQWYE960830DEC03

PATIENT
  Age: 16 Year
  Sex: Female

DRUGS (3)
  1. ANCARON (AMIODARONE, TABLET) [Suspect]
     Dosage: 400 MG 1X PER 1 DAY; 100 MG 1X PER 1 DAY
     Route: 048
     Dates: start: 20031120, end: 20031126
  2. ANCARON (AMIODARONE, TABLET) [Suspect]
     Dosage: 400 MG 1X PER 1 DAY; 100 MG 1X PER 1 DAY
     Route: 048
     Dates: start: 20031127, end: 20031218
  3. SYMMETREL [Concomitant]

REACTIONS (1)
  - HYPOGLYCAEMIA [None]
